FAERS Safety Report 5014205-2 (Version None)
Quarter: 2006Q2

REPORT INFORMATION
  Report Type: 
  Country: None (occurrence: None)
  Receive Date: 20060530
  Receipt Date: 20060523
  Transmission Date: 20061013
  Serious: Yes (Hospitalization)
  Sender: FDA-Public Use
  Company Number: AU-MERCK-0605AUS00240

PATIENT
  Age: 77 Year
  Sex: Male
  Weight: 84 kg

DRUGS (11)
  1. EMEND [Suspect]
     Route: 065
     Dates: start: 20051220, end: 20051222
  2. OMEPRAZOLE [Concomitant]
     Route: 065
  3. PRAZOSIN HYDROCHLORIDE [Concomitant]
     Route: 065
  4. ALLOPURINOL [Concomitant]
     Route: 065
  5. OXYCODONE HYDROCHLORIDE [Concomitant]
     Route: 065
  6. MESNA [Concomitant]
     Route: 065
  7. IFOSFAMIDE [Suspect]
     Route: 065
     Dates: start: 20051222, end: 20051222
  8. ONDANSETRON HCL [Suspect]
     Indication: NAUSEA
     Route: 065
     Dates: start: 20051220, end: 20051229
  9. ONDANSETRON HCL [Suspect]
     Indication: VOMITING
     Route: 065
     Dates: start: 20051220, end: 20051229
  10. AMOXICILLIN + CLAVULANATE POTASSIUM [Suspect]
     Route: 065
     Dates: start: 20051202, end: 20060103
  11. CIPROFLOXACIN HCL [Suspect]
     Route: 065
     Dates: start: 20051223, end: 20060105

REACTIONS (5)
  - AGITATION [None]
  - DELIRIUM [None]
  - DEPRESSED LEVEL OF CONSCIOUSNESS [None]
  - HALLUCINATION [None]
  - NIGHTMARE [None]
